FAERS Safety Report 5063084-6 (Version None)
Quarter: 2006Q3

REPORT INFORMATION
  Report Type: 
  Country: None (occurrence: None)
  Receive Date: 20060727
  Receipt Date: 20060714
  Transmission Date: 20061208
  Serious: Yes (Death, Life-Threatening, Hospitalization, Other)
  Sender: FDA-Public Use
  Company Number: JP-BRISTOL-MYERS SQUIBB COMPANY-13442793

PATIENT
  Age: 48 Year
  Sex: Male

DRUGS (11)
  1. ENDOXAN [Suspect]
     Indication: LYMPHOMA
     Dates: start: 20050202
  2. DOXORUBICIN HCL [Suspect]
     Indication: LYMPHOMA
     Dates: start: 20050202
  3. VINCRISTINE SULFATE [Suspect]
     Indication: LYMPHOMA
     Dates: start: 20050202
  4. LASTET [Suspect]
     Indication: LYMPHOMA
     Route: 041
     Dates: start: 20050302
  5. IFOMIDE [Suspect]
     Indication: LYMPHOMA
     Route: 041
     Dates: start: 20050412
  6. PARAPLATIN [Suspect]
     Indication: LYMPHOMA
     Dates: start: 20050412
  7. PREDNISOLONE [Suspect]
     Indication: LYMPHOMA
     Dates: start: 20050202
  8. DECADRON [Suspect]
     Indication: LYMPHOMA
     Dates: start: 20050412
  9. STOCRIN [Concomitant]
     Indication: HIV INFECTION
     Route: 048
     Dates: start: 20050204, end: 20050428
  10. ZERIT [Concomitant]
     Indication: HIV INFECTION
     Route: 048
     Dates: start: 20050204, end: 20050428
  11. EPIVIR [Concomitant]
     Indication: HIV INFECTION
     Route: 048
     Dates: start: 20050204, end: 20050428

REACTIONS (7)
  - ATRIAL FIBRILLATION [None]
  - COMA [None]
  - HEPATIC FAILURE [None]
  - MALIGNANT NEOPLASM PROGRESSION [None]
  - PLATELET COUNT DECREASED [None]
  - SOMNOLENCE [None]
  - WHITE BLOOD CELL COUNT DECREASED [None]
